FAERS Safety Report 6356889-2 (Version None)
Quarter: 2009Q3

REPORT INFORMATION
  Report Type: 
  Country: None (occurrence: None)
  Receive Date: 20090915
  Receipt Date: 20090909
  Transmission Date: 20100115
  Serious: Yes (Death, Other)
  Sender: FDA-Public Use
  Company Number: US-ROXANE LABORATORIES, INC.-2009-RO-00929RO

PATIENT
  Age: 56 Year
  Sex: Female

DRUGS (6)
  1. PREDNISONE TAB [Suspect]
     Indication: AUTOIMMUNE HEPATITIS
     Route: 048
  2. PREDNISONE TAB [Suspect]
  3. PREDNISONE TAB [Suspect]
     Dosage: 20 MG
  4. PREDNISONE TAB [Suspect]
     Dosage: 5 MG
  5. PREDNISONE TAB [Suspect]
     Dosage: 2.5 MG
  6. AZATHIOPRINE [Suspect]
     Indication: IMMUNOSUPPRESSANT DRUG THERAPY

REACTIONS (5)
  - AUTOIMMUNE HEPATITIS [None]
  - DEATH [None]
  - HIGH GRADE B-CELL LYMPHOMA BURKITT-LIKE LYMPHOMA [None]
  - RETINAL DETACHMENT [None]
  - WEIGHT INCREASED [None]
